FAERS Safety Report 15805603 (Version 2)
Quarter: 2019Q1

REPORT INFORMATION
  Report Type: Spontaneous
  Country: DE (occurrence: DE)
  Receive Date: 20190110
  Receipt Date: 20190125
  Transmission Date: 20190417
  Serious: Yes (Other)
  Sender: FDA-Public Use
  Company Number: DE-REGENERON PHARMACEUTICALS, INC.-2019-10639

PATIENT

DRUGS (4)
  1. EYLEA [Suspect]
     Active Substance: AFLIBERCEPT
     Indication: AGE-RELATED MACULAR DEGENERATION
     Dosage: UNK
  2. EYLEA [Suspect]
     Active Substance: AFLIBERCEPT
     Dosage: TOTAL DOSE OF 10 DOSES PRIOR TO THE EVENT IN LEFT EYE
     Route: 031
     Dates: start: 20181206
  3. JOD [Concomitant]
     Indication: INFECTION PROPHYLAXIS
  4. PROXYMETACAINE [Concomitant]
     Indication: ANAESTHESIA

REACTIONS (2)
  - Suspected product quality issue [Unknown]
  - Endophthalmitis [Unknown]

NARRATIVE: CASE EVENT DATE: 20181210
